FAERS Safety Report 6706159-5 (Version None)
Quarter: 2010Q2

REPORT INFORMATION
  Report Type: 
  Country: None (occurrence: None)
  Receive Date: 20100430
  Receipt Date: 20100430
  Transmission Date: 20101027
  Serious: No
  Sender: FDA-Public Use
  Company Number: None

PATIENT
  Age: 77 Year
  Sex: Male

DRUGS (2)
  1. WARFARIN SODIUM [Suspect]
     Indication: ATRIAL FLUTTER
     Dosage: 100 MG BID SQ
     Route: 058
     Dates: start: 20100413, end: 20100416
  2. WARFARIN SODIUM [Suspect]
     Indication: ATRIAL FLUTTER
     Dosage: 5 MG EVERY DAY PO
     Route: 048
     Dates: start: 20100413, end: 20100416

REACTIONS (2)
  - HAEMATOMA [None]
  - SCROTAL HAEMATOMA [None]
